FAERS Safety Report 5492873-9 (Version None)
Quarter: 2007Q4

REPORT INFORMATION
  Report Type: 
  Country: None (occurrence: None)
  Receive Date: 20071023
  Receipt Date: 20061030
  Transmission Date: 20080405
  Serious: Yes (Hospitalization)
  Sender: FDA-Public Use
  Company Number: US-BRISTOL-MYERS SQUIBB COMPANY-13560743

PATIENT
  Age: 46 Year
  Sex: Male
  Weight: 88 kg

DRUGS (1)
  1. BUSPAR [Suspect]
     Indication: GENERALISED ANXIETY DISORDER
     Dosage: PT. STATES HE STOPPED THERAPY FOR 6 MONTHS IN THE MIDDLE OF 4 YEARS.
     Dates: start: 19980101

REACTIONS (4)
  - DIZZINESS [None]
  - HUNGER [None]
  - MYOCARDIAL INFARCTION [None]
  - WEIGHT INCREASED [None]
